FAERS Safety Report 11625613 (Version 6)
Quarter: 2016Q2

REPORT INFORMATION
  Report Type: Spontaneous
  Country: US (occurrence: US)
  Receive Date: 20151013
  Receipt Date: 20160511
  Transmission Date: 20160815
  Serious: Yes (Hospitalization)
  Sender: FDA-Public Use
  Company Number: US-ACTELION PHARMACEUTICALS US, INC.-A-US2015-125225

PATIENT
  Age: 51 Year
  Sex: Female

DRUGS (4)
  1. OPSUMIT [Suspect]
     Active Substance: MACITENTAN
     Indication: PULMONARY HYPERTENSION
     Dosage: 10 MG, QD
     Route: 048
     Dates: start: 20140130
  2. RIOCIGUAT [Concomitant]
     Active Substance: RIOCIGUAT
  3. OXYGEN. [Concomitant]
     Active Substance: OXYGEN
  4. VELETRI [Suspect]
     Active Substance: EPOPROSTENOL
     Indication: PULMONARY HYPERTENSION
     Dosage: 59 NG/KG, PER MIN
     Route: 042
     Dates: start: 20100714

REACTIONS (7)
  - Complication associated with device [Unknown]
  - Oxygen saturation decreased [Unknown]
  - Device alarm issue [Recovered/Resolved]
  - Dyspnoea [Recovering/Resolving]
  - Dizziness postural [Unknown]
  - Device occlusion [Recovered/Resolved]
  - Chest pain [Unknown]

NARRATIVE: CASE EVENT DATE: 20160418
